FAERS Safety Report 6369888-1 (Version None)
Quarter: 2009Q3

REPORT INFORMATION
  Report Type: 
  Country: None (occurrence: None)
  Receive Date: 20090918
  Receipt Date: 20090909
  Transmission Date: 20100115
  Serious: Yes (Hospitalization)
  Sender: FDA-Public Use
  Company Number: 342672

PATIENT
  Age: 14 Year
  Sex: Male
  Weight: 46.9 kg

DRUGS (7)
  1. METHOTREXATE [Suspect]
     Indication: ACUTE LYMPHOCYTIC LEUKAEMIA
     Dosage: 250 MG/M2, INTRAVENOUS, 380 MG, INTRAVENOUS, 380 MG, INTRAVENOUS
     Route: 042
     Dates: start: 20090709
  2. METHOTREXATE [Suspect]
     Indication: ACUTE LYMPHOCYTIC LEUKAEMIA
     Dosage: 250 MG/M2, INTRAVENOUS, 380 MG, INTRAVENOUS, 380 MG, INTRAVENOUS
     Route: 042
     Dates: start: 20090720
  3. METHOTREXATE [Suspect]
     Indication: ACUTE LYMPHOCYTIC LEUKAEMIA
     Dosage: 250 MG/M2, INTRAVENOUS, 380 MG, INTRAVENOUS, 380 MG, INTRAVENOUS
     Route: 042
     Dates: start: 20090730
  4. VINCRISTINE [Concomitant]
  5. STERILE PENTAMIDINE ISETHIONATE (PENTAMIDINE) [Concomitant]
  6. MIRALAX [Concomitant]
  7. KYTRIL [Concomitant]

REACTIONS (20)
  - ACNE [None]
  - ALOPECIA [None]
  - AREFLEXIA [None]
  - ASTHENIA [None]
  - CONSTIPATION [None]
  - DRUG CLEARANCE DECREASED [None]
  - HEADACHE [None]
  - HEPATITIS [None]
  - OROPHARYNGEAL DISCOMFORT [None]
  - PAIN [None]
  - PANCYTOPENIA [None]
  - PERONEAL NERVE PALSY [None]
  - PHARYNGEAL ERYTHEMA [None]
  - PHARYNGEAL ULCERATION [None]
  - PYREXIA [None]
  - RASH MACULAR [None]
  - RASH PRURITIC [None]
  - RENAL FAILURE [None]
  - STOMATITIS [None]
  - TRISOMY 21 [None]
